FAERS Safety Report 5158261-X (Version None)
Quarter: 2006Q4

REPORT INFORMATION
  Report Type: 
  Country: None (occurrence: None)
  Receive Date: 20061117
  Receipt Date: 20061108
  Transmission Date: 20070319
  Serious: Yes (Life-Threatening)
  Sender: FDA-Public Use
  Company Number: HQWYE548111SEP06

PATIENT
  Age: 62 Year
  Sex: Male

DRUGS (8)
  1. ANCARON (AMIODARONE, UNSPEC) [Suspect]
     Indication: ATRIAL FIBRILLATION
     Dosage: 200 MG 2X PER 1 DAY, ORAL
     Route: 048
     Dates: start: 20060817, end: 20060831
  2. LASIX [Suspect]
     Indication: DIURETIC THERAPY
     Dosage: SEE IMAGE
     Route: 048
     Dates: start: 20060720, end: 20060815
  3. LASIX [Suspect]
     Indication: HYPERTENSION
     Dosage: SEE IMAGE
     Route: 048
     Dates: start: 20060720, end: 20060815
  4. LASIX [Suspect]
     Indication: DIURETIC THERAPY
     Dosage: SEE IMAGE
     Route: 048
     Dates: start: 20060817
  5. LASIX [Suspect]
     Indication: HYPERTENSION
     Dosage: SEE IMAGE
     Route: 048
     Dates: start: 20060817
  6. FAMOTIDINE [Concomitant]
  7. WARFARIN SODIUM [Concomitant]
  8. MICARDIS [Concomitant]

REACTIONS (8)
  - CARDIAC FAILURE [None]
  - CARDIAC TAMPONADE [None]
  - DRUG INEFFECTIVE [None]
  - DRUG INTERACTION INHIBITION [None]
  - HAEMATOCRIT DECREASED [None]
  - HAEMOGLOBIN DECREASED [None]
  - PERICARDIAL EFFUSION [None]
  - RENAL FAILURE [None]
